FAERS Safety Report 8023294-2 (Version None)
Quarter: 2012Q1

REPORT INFORMATION
  Report Type: 
  Country: None (occurrence: None)
  Receive Date: 20120104
  Receipt Date: 20120103
  Transmission Date: 20120608
  Serious: No
  Sender: FDA-Public Use
  Company Number: US-BAYER-2012-000798

PATIENT
  Age: 31 Year
  Sex: Female
  Weight: 63.492 kg

DRUGS (1)
  1. MAGNEVIST [Suspect]
     Indication: NUCLEAR MAGNETIC RESONANCE IMAGING BRAIN
     Dosage: UNK
     Route: 042
     Dates: start: 20120103

REACTIONS (2)
  - PARAESTHESIA ORAL [None]
  - SENSATION OF FOREIGN BODY [None]
